FAERS Safety Report 8903833 (Version 1)
Quarter: 2012Q4

REPORT INFORMATION
  Report Type: 
  Country: US (occurrence: US)
  Receive Date: 20121112
  Receipt Date: 20121112
  Transmission Date: 20130627
  Serious: Yes (Hospitalization)
  Sender: FDA-Public Use
  Company Number: US-GILEAD-2012-0064394

PATIENT
  Age: 50 Year
  Sex: Female

DRUGS (1)
  1. LETAIRIS [Suspect]
     Indication: SARCOIDOSIS
     Dosage: 10 mg, QD
     Route: 048
     Dates: start: 20110909

REACTIONS (2)
  - Pneumonia [Unknown]
  - Fluid retention [Unknown]
